FAERS Safety Report 4677600-7 (Version None)
Quarter: 2005Q2

REPORT INFORMATION
  Report Type: 
  Country: None (occurrence: None)
  Receive Date: 20050527
  Receipt Date: 20050527
  Transmission Date: 20051028
  Serious: No
  Sender: FDA-Public Use
  Company Number: None

PATIENT
  Sex: Female
  Weight: 62.7 kg

DRUGS (4)
  1. FLUOROURACIL [Suspect]
     Indication: ANAL CANCER
     Dosage: 1000 MG/M2 DAY GIVEN AS CONTINUOUS INFUSION IN 5% DEXTROSE OR 0.5 MS DAILY FOR 96 HOURS
     Dates: start: 20050429
  2. MITOMYCIN C [Suspect]
     Dosage: 10 MG/M2 BOLUS IV ON THE FIRST DAY OF BOTH 5-FU CYCLES
     Route: 042
  3. KYTRIL [Concomitant]
  4. PERCOCET [Concomitant]

REACTIONS (5)
  - ABDOMINAL PAIN [None]
  - CHILLS [None]
  - DIARRHOEA [None]
  - NAUSEA [None]
  - VOMITING [None]
